FAERS Safety Report 18440915 (Version 1)
Quarter: 2020Q4

REPORT INFORMATION
  Report Type: Spontaneous
  Country: US (occurrence: US)
  Receive Date: 20201029
  Receipt Date: 20201029
  Transmission Date: 20210114
  Serious: Yes (Death, Hospitalization, Other)
  Sender: FDA-Public Use
  Company Number: US-SA-2020SA299511

PATIENT

DRUGS (8)
  1. ALLOPURINOL. [Suspect]
     Active Substance: ALLOPURINOL
  2. DOXEPIN [Suspect]
     Active Substance: DOXEPIN
  3. METHOTREXATE. [Suspect]
     Active Substance: METHOTREXATE
     Indication: RHEUMATOID ARTHRITIS
     Dosage: 5 MG, QW
     Route: 048
     Dates: start: 198305, end: 1983
  4. PREDNISONE. [Suspect]
     Active Substance: PREDNISONE
     Dosage: 10 MG, QD
  5. METHOTREXATE. [Suspect]
     Active Substance: METHOTREXATE
     Dosage: 7.5 MG QW (AS DIVIDED DOSES OF 2.5 MG EACH, 12 HOURS APART)
     Route: 048
     Dates: start: 1983
  6. DIPHENHYDRAMINE. [Suspect]
     Active Substance: DIPHENHYDRAMINE
     Dosage: UNK
     Dates: start: 1983
  7. METOCLOPRAMIDE HYDROCHLORIDE. [Suspect]
     Active Substance: METOCLOPRAMIDE HYDROCHLORIDE
  8. SULINDAC. [Suspect]
     Active Substance: SULINDAC

REACTIONS (19)
  - Asthenia [Recovered/Resolved]
  - Respiratory failure [Unknown]
  - Oedema peripheral [Unknown]
  - Fungal skin infection [Unknown]
  - Myelosuppression [Recovered/Resolved]
  - Dyspnoea [Recovered/Resolved]
  - Drug interaction [Unknown]
  - Escherichia sepsis [Fatal]
  - Tenderness [Unknown]
  - Abdominal distension [Unknown]
  - Ulcer [Unknown]
  - Gastrointestinal haemorrhage [Unknown]
  - Rash pruritic [Unknown]
  - Rash pustular [Unknown]
  - Shock [Fatal]
  - Toxicity to various agents [Recovered/Resolved]
  - Metabolic alkalosis [Unknown]
  - Pancytopenia [Recovered/Resolved]
  - Cough [Unknown]

NARRATIVE: CASE EVENT DATE: 1983
